FAERS Safety Report 13863079 (Version 1)
Quarter: 2017Q3

REPORT INFORMATION
  Report Type: Spontaneous
  Country: AR (occurrence: AR)
  Receive Date: 20170814
  Receipt Date: 20170814
  Transmission Date: 20171127
  Serious: Yes (Hospitalization, Other)
  Sender: FDA-Public Use
  Company Number: AR-ROCHE-1974355

PATIENT
  Age: 53 Year
  Sex: Female

DRUGS (12)
  1. TRASTUZUMAB. [Suspect]
     Active Substance: TRASTUZUMAB
     Indication: INVASIVE PAPILLARY BREAST CARCINOMA
     Dosage: X 18 CYCLES
     Route: 065
  2. PAMIDRONATE [Concomitant]
     Active Substance: PAMIDRONATE DISODIUM
     Indication: INVASIVE PAPILLARY BREAST CARCINOMA
     Route: 065
     Dates: start: 201107
  3. PACLITAXEL. [Concomitant]
     Active Substance: PACLITAXEL
     Indication: INVASIVE PAPILLARY BREAST CARCINOMA
     Dosage: WEEKLY
     Route: 065
     Dates: start: 201406, end: 201412
  4. TRASTUZUMAB. [Suspect]
     Active Substance: TRASTUZUMAB
     Route: 065
     Dates: start: 201107, end: 201305
  5. TRASTUZUMAB EMTANSINE [Suspect]
     Active Substance: ADO-TRASTUZUMAB EMTANSINE
     Indication: INVASIVE PAPILLARY BREAST CARCINOMA
     Route: 065
     Dates: start: 201604
  6. TRASTUZUMAB. [Suspect]
     Active Substance: TRASTUZUMAB
     Route: 065
     Dates: start: 201308
  7. TRASTUZUMAB. [Suspect]
     Active Substance: TRASTUZUMAB
     Route: 065
     Dates: start: 201406
  8. DOCETAXEL. [Concomitant]
     Active Substance: DOCETAXEL
     Indication: INVASIVE PAPILLARY BREAST CARCINOMA
     Route: 065
     Dates: start: 201107, end: 201203
  9. EXEMESTANE. [Concomitant]
     Active Substance: EXEMESTANE
     Indication: INVASIVE PAPILLARY BREAST CARCINOMA
     Route: 065
     Dates: start: 201203
  10. PERTUZUMAB. [Suspect]
     Active Substance: PERTUZUMAB
     Indication: INVASIVE PAPILLARY BREAST CARCINOMA
     Route: 065
     Dates: start: 201406
  11. LETROZOLE. [Concomitant]
     Active Substance: LETROZOLE
     Indication: INVASIVE PAPILLARY BREAST CARCINOMA
     Route: 065
     Dates: start: 201412
  12. ANASTROZOLE. [Concomitant]
     Active Substance: ANASTROZOLE
     Indication: INVASIVE PAPILLARY BREAST CARCINOMA
     Dosage: X 2 YEARS
     Route: 065

REACTIONS (4)
  - Pathological fracture [Unknown]
  - Blood alkaline phosphatase increased [Unknown]
  - Ejection fraction decreased [Recovered/Resolved]
  - Hepatotoxicity [Recovered/Resolved]

NARRATIVE: CASE EVENT DATE: 201107
